FAERS Safety Report 9190694 (Version 2)
Quarter: 2013Q2

REPORT INFORMATION
  Report Type: Spontaneous
  Country: US (occurrence: US)
  Receive Date: 20130326
  Receipt Date: 20130401
  Transmission Date: 20140414
  Serious: Yes (Hospitalization, Other)
  Sender: FDA-Public Use
  Company Number: US-BAXTER-2013BAX007905

PATIENT
  Age: 43 Year
  Sex: Male

DRUGS (1)
  1. DIANEAL LOW CALCIUM [Suspect]
     Indication: PERITONEAL DIALYSIS
     Route: 033

REACTIONS (4)
  - Oesophageal rupture [Recovering/Resolving]
  - Gastrointestinal hypomotility [Recovering/Resolving]
  - Diabetic vascular disorder [Recovering/Resolving]
  - Vomiting [Recovering/Resolving]
